FAERS Safety Report 10822395 (Version 1)
Quarter: 2015Q1

REPORT INFORMATION
  Report Type: Spontaneous
  Country: US (occurrence: US)
  Receive Date: 20150218
  Receipt Date: 20150218
  Transmission Date: 20150721
  Serious: No
  Sender: FDA-Public Use
  Company Number: US-MYLANLABS-2014S1002970

PATIENT
  Age: 61 Year
  Sex: Female

DRUGS (5)
  1. CEFTIN [Concomitant]
     Active Substance: CEFUROXIME AXETIL
     Dosage: 250 MG,UNK
  2. EPIPEN [Suspect]
     Active Substance: EPINEPHRINE
     Dosage: .3 MG,PRN
     Route: 030
  3. CLARITIN [Concomitant]
     Active Substance: LORATADINE
     Dosage: UNK
  4. POTASSIUM [Concomitant]
     Active Substance: POTASSIUM
     Dosage: UNK
  5. BLOOD PRESSURE PILL [Concomitant]
     Dosage: UNK

REACTIONS (2)
  - Device failure [Recovered/Resolved]
  - Injection site pain [Not Recovered/Not Resolved]

NARRATIVE: CASE EVENT DATE: 20140209
